FAERS Safety Report 8269288-3 (Version None)
Quarter: 2012Q2

REPORT INFORMATION
  Report Type: 
  Country: None (occurrence: None)
  Receive Date: 20120409
  Receipt Date: 20120326
  Transmission Date: 20120825
  Serious: Yes (Other)
  Sender: FDA-Public Use
  Company Number: JP-ROCHE-1037494

PATIENT
  Sex: Female
  Weight: 74 kg

DRUGS (16)
  1. TRICHLORMETHIAZIDE [Concomitant]
     Indication: HYPERTENSION
     Route: 048
  2. LANSOPRAZOLE [Concomitant]
     Indication: GASTRITIS
     Route: 048
  3. DIOVAN [Concomitant]
     Indication: HYPERTENSION
     Route: 048
  4. MIRCERA [Suspect]
     Indication: NEPHROGENIC ANAEMIA
     Dosage: DOSAGE IS UNCERTAIN.
     Route: 058
     Dates: start: 20110101, end: 20111202
  5. HUMALOG [Concomitant]
     Indication: DIABETES MELLITUS
     Route: 058
  6. DOXAZOSIN MESYLATE [Concomitant]
     Indication: HYPERTENSION
     Route: 048
  7. ACECOL [Concomitant]
     Indication: HYPERTENSION
     Route: 048
  8. LIPITOR [Concomitant]
     Indication: HYPERLIPIDAEMIA
     Route: 048
  9. CALCIUM CARBONATE [Concomitant]
     Indication: HYPERLIPIDAEMIA
     Route: 048
  10. LASIX [Concomitant]
     Indication: OEDEMA
     Route: 048
  11. NOVOLIN N [Concomitant]
     Indication: DIABETES MELLITUS
     Route: 058
  12. ALLOPURINOL [Concomitant]
     Indication: HYPERURICAEMIA
     Route: 048
  13. DIOVAN [Concomitant]
  14. MIRCERA [Suspect]
     Route: 058
     Dates: start: 20120117
  15. AMLODIPINE [Concomitant]
     Indication: HYPERTENSION
     Route: 048
  16. FERROUS SULFATE TAB [Concomitant]
     Indication: IRON DEFICIENCY ANAEMIA
     Route: 048
     Dates: start: 20120116

REACTIONS (1)
  - ANAEMIA [None]
